FAERS Safety Report 13460164 (Version 1)
Quarter: 2017Q2

REPORT INFORMATION
  Report Type: Spontaneous
  Country: BE (occurrence: BE)
  Receive Date: 20170420
  Receipt Date: 20170420
  Transmission Date: 20170830
  Serious: Yes (Other)
  Sender: FDA-Public Use
  Company Number: BE-SUN PHARMACEUTICAL INDUSTRIES LTD-2017RR-138436

PATIENT
  Age: 29 Year
  Sex: Female

DRUGS (4)
  1. ATOSIBAN [Suspect]
     Active Substance: ATOSIBAN
     Indication: PREMATURE BABY
     Route: 042
  2. CELESTONE [Suspect]
     Active Substance: BETAMETHASONE
     Indication: MATERNAL THERAPY TO ENHANCE FOETAL LUNG MATURITY
     Dosage: 2X12 MG IM
  3. AMOXICILLIN/CLAVULANIC ACID [Suspect]
     Active Substance: AMOXICILLIN\CLAVULANIC ACID
     Indication: PRODUCT USED FOR UNKNOWN INDICATION
     Route: 065
  4. ACETYLSALICYLIC ACID [Suspect]
     Active Substance: ASPIRIN
     Indication: PROPHYLAXIS
     Route: 065

REACTIONS (5)
  - Drug effect incomplete [Unknown]
  - Exposure during pregnancy [Unknown]
  - Abdominal pain [Unknown]
  - Pathogen resistance [Unknown]
  - Discoloured vomit [Not Recovered/Not Resolved]
